FAERS Safety Report 8875925 (Version 1)
Quarter: 2012Q4

REPORT INFORMATION
  Report Type: 
  Country: JP (occurrence: JP)
  Receive Date: 20121023
  Receipt Date: 20121023
  Transmission Date: 20130627
  Serious: Yes (Other)
  Sender: FDA-Public Use
  Company Number: JP-GLAXOSMITHKLINE-B0814025A

PATIENT
  Age: 74 Year
  Sex: Female

DRUGS (3)
  1. HYCAMTIN [Suspect]
     Indication: OVARIAN CANCER RECURRENT
     Dosage: .8MGM2 per day
     Route: 042
     Dates: start: 20120309, end: 20120313
  2. HYCAMTIN [Suspect]
     Indication: OVARIAN CANCER RECURRENT
     Dosage: .8MGM2 per day
     Route: 042
     Dates: start: 20120406, end: 20120410
  3. HYCAMTIN [Suspect]
     Indication: OVARIAN CANCER RECURRENT
     Dosage: .8MGM2 per day
     Route: 042
     Dates: start: 20120510, end: 20120514

REACTIONS (7)
  - Anaemia [Recovered/Resolved]
  - White blood cell count decreased [Recovered/Resolved]
  - Neutrophil count decreased [Recovered/Resolved]
  - Red blood cell count decreased [Recovering/Resolving]
  - Nausea [Recovered/Resolved]
  - Decreased appetite [Recovered/Resolved]
  - Platelet count decreased [Recovered/Resolved]
